FAERS Safety Report 6386314-7 (Version None)
Quarter: 2009Q4

REPORT INFORMATION
  Report Type: 
  Country: None (occurrence: None)
  Receive Date: 20091002
  Receipt Date: 20090923
  Transmission Date: 20100525
  Serious: Yes (Hospitalization)
  Sender: FDA-Public Use
  Company Number: PHHO2009US04205

PATIENT
  Sex: Female

DRUGS (2)
  1. ERL 080A ERL+TAB [Suspect]
     Indication: RENAL TRANSPLANT
     Dosage: 1440 MG / DAY
     Route: 048
     Dates: start: 20070801
  2. NEORAL [Suspect]
     Indication: RENAL TRANSPLANT

REACTIONS (5)
  - BLOOD CREATININE INCREASED [None]
  - COUGH [None]
  - DEHYDRATION [None]
  - PYREXIA [None]
  - VIRAL INFECTION [None]
